FAERS Safety Report 16367293 (Version 1)
Quarter: 2019Q2

REPORT INFORMATION
  Report Type: Report from Study
  Country: PL (occurrence: PL)
  Receive Date: 20190529
  Receipt Date: 20190529
  Transmission Date: 20190711
  Serious: Yes (Other)
  Sender: FDA-Public Use
  Company Number: PL-TEVA-2019-PL-1055823

PATIENT
  Age: 37 Year
  Sex: Female

DRUGS (7)
  1. BUDESONIDE. [Suspect]
     Active Substance: BUDESONIDE
     Indication: IMMUNOSUPPRESSANT DRUG THERAPY
     Dosage: 9 MILLIGRAM DAILY; BEFORE DIRECT-ACTING ANTIVIRAL THERAPY
     Route: 065
     Dates: start: 2012
  2. BUDESONIDE. [Interacting]
     Active Substance: BUDESONIDE
     Dosage: 3 MILLIGRAM DAILY; AT BASELINE
     Route: 065
  3. DASABUVIR [Interacting]
     Active Substance: DASABUVIR
     Indication: AUTOIMMUNE HEPATITIS
  4. OMBITASVIR/PARITAPREVIR/RITONAVIR [Interacting]
     Active Substance: OMBITASVIR\PARITAPREVIR\RITONAVIR
     Indication: HEPATITIS C
     Dosage: THERAPY SCHEDULED FOR 12 WEEKS, OMBITASVIR: 25 MG; PARITAPREVIR: 150 MG; RITONAVIR: 100 MG;
     Route: 065
  5. OMBITASVIR/PARITAPREVIR/RITONAVIR [Interacting]
     Active Substance: OMBITASVIR\PARITAPREVIR\RITONAVIR
     Indication: AUTOIMMUNE HEPATITIS
  6. AZATHIOPRINE. [Concomitant]
     Active Substance: AZATHIOPRINE
     Indication: IMMUNOSUPPRESSANT DRUG THERAPY
     Dosage: 50 MILLIGRAM DAILY;
     Route: 065
     Dates: start: 2012
  7. DASABUVIR [Interacting]
     Active Substance: DASABUVIR
     Indication: HEPATITIS C
     Dosage: IN 2 DIVIDED DOSES; THERAPY SCHEDULED FOR 12 WEEKS
     Route: 065

REACTIONS (2)
  - Drug interaction [Recovering/Resolving]
  - Cushing^s syndrome [Recovering/Resolving]
